FAERS Safety Report 23582053 (Version 3)
Quarter: 2024Q3

REPORT INFORMATION
  Report Type: Spontaneous
  Country: US (occurrence: US)
  Receive Date: 20240229
  Receipt Date: 20240805
  Transmission Date: 20241017
  Serious: No
  Sender: SANOFI AVENTIS
  Company Number: US-SA-SAC20240223000611

PATIENT
  Age: 29 Year
  Sex: Male
  Weight: 81.19 kg

DRUGS (1)
  1. DUPIXENT [Suspect]
     Active Substance: DUPILUMAB
     Indication: Eosinophilic oesophagitis
     Dosage: 300 MG, QW
     Route: 058

REACTIONS (10)
  - Dyspnoea [Unknown]
  - Nasal inflammation [Unknown]
  - Fatigue [Recovering/Resolving]
  - Stress [Unknown]
  - Furuncle [Unknown]
  - Condition aggravated [Unknown]
  - Nasal obstruction [Unknown]
  - Eczema [Unknown]
  - Pruritus [Unknown]
  - Rash [Unknown]

NARRATIVE: CASE EVENT DATE: 20240101
